FAERS Safety Report 4604721-7 (Version None)
Quarter: 2005Q2

REPORT INFORMATION
  Report Type: 
  Country: None (occurrence: None)
  Receive Date: 20050217
  Receipt Date: 20041102
  Transmission Date: 20051028
  Serious: No
  Sender: FDA-Public Use
  Company Number: S04-USA-07393-01

PATIENT
  Age: 78 Year
  Sex: Female

DRUGS (6)
  1. NAMENDA [Suspect]
     Dosage: 10 MG BID PO
     Route: 048
     Dates: start: 20040201, end: 20040201
  2. NAMENDA [Suspect]
     Indication: DEMENTIA
     Dosage: 5 MG QD PO
     Route: 048
     Dates: start: 20040501, end: 20040507
  3. NAMENDA [Suspect]
     Indication: DEMENTIA
     Dosage: 5 MG BID PO
     Route: 048
     Dates: start: 20040508, end: 20040514
  4. NAMENDA [Suspect]
     Indication: DEMENTIA
     Dosage: 15 MG QD PO
     Route: 048
     Dates: start: 20040515, end: 20040521
  5. NAMENDA [Suspect]
     Indication: DEMENTIA
     Dosage: 10 MG BID PO
     Route: 048
     Dates: start: 20040522, end: 20040526
  6. HERBAL MEDICATIONS (NOS) [Concomitant]

REACTIONS (2)
  - CONFUSIONAL STATE [None]
  - DRUG INEFFECTIVE [None]
